FAERS Safety Report 13251498 (Version 1)
Quarter: 2017Q1

REPORT INFORMATION
  Report Type: Spontaneous
  Country: US (occurrence: US)
  Receive Date: 20170220
  Receipt Date: 20170220
  Transmission Date: 20170428
  Serious: No
  Sender: FDA-Public Use
  Company Number: US-ASTRAZENECA-2017SE15511

PATIENT
  Age: 19090 Day
  Sex: Female
  Weight: 112.5 kg

DRUGS (6)
  1. CITRACAL D [Concomitant]
     Indication: OSTEOPENIA
     Route: 048
     Dates: start: 2002
  2. CENTRUM WOMENS [Concomitant]
     Indication: SUPPLEMENTATION THERAPY
     Route: 048
     Dates: start: 1997
  3. FARXIGA [Suspect]
     Active Substance: DAPAGLIFLOZIN PROPANEDIOL
     Indication: TYPE 2 DIABETES MELLITUS
     Route: 048
     Dates: start: 20161216
  4. BABY ASPIRIN [Concomitant]
     Active Substance: ASPIRIN
     Indication: TRANSIENT ISCHAEMIC ATTACK
     Route: 048
     Dates: start: 2002
  5. VICTOZA [Concomitant]
     Active Substance: LIRAGLUTIDE
     Indication: TYPE 2 DIABETES MELLITUS
     Route: 058
     Dates: start: 2014
  6. D3 CAPSULES [Concomitant]
     Indication: BLOOD CALCIUM
     Route: 048
     Dates: start: 2002

REACTIONS (6)
  - Intentional product use issue [Unknown]
  - Urine odour abnormal [Recovered/Resolved]
  - Blood glucose increased [Not Recovered/Not Resolved]
  - Weight increased [Unknown]
  - Circumstance or information capable of leading to medication error [Unknown]
  - Product shape issue [Unknown]

NARRATIVE: CASE EVENT DATE: 20161216
